FAERS Safety Report 24350078 (Version 1)
Quarter: 2024Q3

REPORT INFORMATION
  Report Type: Spontaneous
  Country: PT (occurrence: PT)
  Receive Date: 20240923
  Receipt Date: 20240923
  Transmission Date: 20241017
  Serious: Yes (Hospitalization)
  Sender: BRISTOL MYERS SQUIBB
  Company Number: PT-BRISTOL-MYERS SQUIBB COMPANY-2024-149438

PATIENT

DRUGS (2)
  1. NIVOLUMAB [Suspect]
     Active Substance: NIVOLUMAB
     Indication: Product used for unknown indication
     Dates: start: 20230629, end: 20230629
  2. IPILIMUMAB [Suspect]
     Active Substance: IPILIMUMAB
     Indication: Product used for unknown indication
     Dates: start: 20230629, end: 20230629

REACTIONS (2)
  - Endocrine toxicity [Recovered/Resolved]
  - Pancreatic toxicity [Recovered/Resolved]

NARRATIVE: CASE EVENT DATE: 20231107
